FAERS Safety Report 10336754 (Version 3)
Quarter: 2014Q3

REPORT INFORMATION
  Report Type: Report from Study
  Country: US (occurrence: US)
  Receive Date: 20140723
  Receipt Date: 20140821
  Transmission Date: 20150326
  Serious: Yes (Other)
  Sender: FDA-Public Use
  Company Number: US-GLAXOSMITHKLINE-A1061154A

PATIENT
  Sex: Male

DRUGS (4)
  1. DIURETIC [Suspect]
     Active Substance: UNSPECIFIED INGREDIENT
     Indication: FLUID RETENTION
  2. UNKNOWN MEDICATION [Suspect]
     Active Substance: UNSPECIFIED INGREDIENT
     Indication: CHRONIC OBSTRUCTIVE PULMONARY DISEASE
  3. ALBUTEROL. [Suspect]
     Active Substance: ALBUTEROL
     Indication: CHRONIC OBSTRUCTIVE PULMONARY DISEASE
     Route: 065
  4. VENTOLIN [Suspect]
     Active Substance: ALBUTEROL SULFATE
     Indication: PRODUCT USED FOR UNKNOWN INDICATION
     Route: 065

REACTIONS (11)
  - Oedema [Unknown]
  - Hypovitaminosis [Unknown]
  - Mass [Not Recovered/Not Resolved]
  - Pain in extremity [Unknown]
  - Arthralgia [Unknown]
  - Back pain [Unknown]
  - Dyspnoea [Unknown]
  - Adverse event [Unknown]
  - Cataract operation [Unknown]
  - Fluid retention [Unknown]
  - Muscle spasms [Unknown]
